FAERS Safety Report 5506562-5 (Version None)
Quarter: 2007Q4

REPORT INFORMATION
  Report Type: 
  Country: None (occurrence: None)
  Receive Date: 20071105
  Receipt Date: 20071029
  Transmission Date: 20080405
  Serious: Yes (Hospitalization)
  Sender: FDA-Public Use
  Company Number: D0054095A

PATIENT
  Age: 55 Year
  Sex: Female
  Weight: 70 kg

DRUGS (3)
  1. LAMICTAL [Suspect]
     Route: 048
     Dates: start: 20070724, end: 20070724
  2. LEPONEX [Suspect]
     Dosage: 250MG PER DAY
     Route: 048
     Dates: start: 20070724, end: 20070724
  3. ORFIRIL LONG [Suspect]
     Dosage: 300MG SINGLE DOSE
     Route: 048
     Dates: start: 20070724, end: 20070724

REACTIONS (4)
  - BLOOD CREATINE PHOSPHOKINASE INCREASED [None]
  - DISTURBANCE IN ATTENTION [None]
  - SOMNOLENCE [None]
  - WRONG DRUG ADMINISTERED [None]
